FAERS Safety Report 25204658 (Version 1)
Quarter: 2025Q2

REPORT INFORMATION
  Report Type: Spontaneous
  Country: US (occurrence: US)
  Receive Date: 20250416
  Receipt Date: 20250416
  Transmission Date: 20250717
  Serious: No
  Sender: ROCHE
  Company Number: US-ROCHE-10000254655

PATIENT
  Age: 79 Year
  Sex: Female

DRUGS (1)
  1. KADCYLA [Suspect]
     Active Substance: ADO-TRASTUZUMAB EMTANSINE
     Indication: Breast cancer metastatic
     Route: 065

REACTIONS (3)
  - Brain fog [Not Recovered/Not Resolved]
  - Amnesia [Not Recovered/Not Resolved]
  - Balance disorder [Not Recovered/Not Resolved]
